FAERS Safety Report 8958418 (Version 1)
Quarter: 2012Q4

REPORT INFORMATION
  Report Type: Spontaneous
  Country: US (occurrence: None)
  Receive Date: 20121205
  Receipt Date: 20121205
  Transmission Date: 20130627
  Serious: Yes (Other)
  Sender: FDA-Public Use
  Company Number: None

PATIENT
  Age: 57 Year
  Sex: Male
  Weight: 75.3 kg

DRUGS (1)
  1. LAMICTAL XL 50 MG [Suspect]
     Dosage: ONE (1)  BID  PO
     Route: 048

REACTIONS (1)
  - Convulsion [None]
